FAERS Safety Report 8116455 (Version 4)
Quarter: 2013Q4

REPORT INFORMATION
  Report Type: Spontaneous
  Country: US (occurrence: US)
  Receive Date: 20110901
  Receipt Date: 20131206
  Transmission Date: 20140711
  Serious: Yes (Hospitalization, Other)
  Sender: FDA-Public Use
  Company Number: US-B.I. PHARMACEUTICALS,INC./RIDGEFIELD-2011-BP-20466BP

PATIENT
  Age: 72 Year
  Sex: Male
  Weight: 94.35 kg

DRUGS (2)
  1. PRADAXA [Suspect]
     Indication: ATRIAL FIBRILLATION
     Dates: start: 20110816, end: 20120528
  2. LANTUS [Concomitant]
     Indication: DIABETES MELLITUS

REACTIONS (6)
  - Haemoptysis [Unknown]
  - Gastrointestinal haemorrhage [Unknown]
  - Epistaxis [Unknown]
  - Acute respiratory failure [Recovered/Resolved]
  - Blood glucose increased [Unknown]
  - Pneumonia [Unknown]
